FAERS Safety Report 6264217-6 (Version None)
Quarter: 2009Q3

REPORT INFORMATION
  Report Type: 
  Country: None (occurrence: None)
  Receive Date: 20090708
  Receipt Date: 20090708
  Transmission Date: 20100115
  Serious: Yes (Other)
  Sender: FDA-Public Use
  Company Number: None

PATIENT
  Age: 22 Year
  Sex: Female
  Weight: 58.9676 kg

DRUGS (1)
  1. AMPHETAMINE SALTS QTY 50 COREPHARMA [Suspect]
     Indication: ATTENTION DEFICIT/HYPERACTIVITY DISORDER
     Dosage: 30 MG TWICE DAILY PO
     Route: 048
     Dates: start: 20090701, end: 20090706

REACTIONS (6)
  - ANXIETY [None]
  - DEPRESSION [None]
  - DISTURBANCE IN ATTENTION [None]
  - FEELING JITTERY [None]
  - NEGATIVE THOUGHTS [None]
  - PRODUCT SUBSTITUTION ISSUE [None]
